FAERS Safety Report 17813094 (Version 2)
Quarter: 2020Q3

REPORT INFORMATION
  Report Type: Report from Study
  Country: US (occurrence: US)
  Receive Date: 20200521
  Receipt Date: 20200729
  Transmission Date: 20201102
  Serious: No
  Sender: FDA-Public Use
  Company Number: NVSC2020US140015

PATIENT
  Age: 67 Year
  Sex: Female

DRUGS (1)
  1. COSENTYX [Suspect]
     Active Substance: SECUKINUMAB
     Indication: PSORIATIC ARTHROPATHY
     Dosage: UNK
     Route: 065

REACTIONS (10)
  - Palpitations [Unknown]
  - Dry mouth [Unknown]
  - Skin exfoliation [Unknown]
  - Diarrhoea [Unknown]
  - Dysphagia [Unknown]
  - Heart rate abnormal [Unknown]
  - Rash vesicular [Unknown]
  - Burning sensation [Unknown]
  - Fatigue [Unknown]
  - Sleep disorder [Unknown]
